FAERS Safety Report 5343893-6 (Version None)
Quarter: 2007Q2

REPORT INFORMATION
  Report Type: 
  Country: None (occurrence: None)
  Receive Date: 20070531
  Receipt Date: 20070531
  Transmission Date: 20071010
  Serious: No
  Sender: FDA-Public Use
  Company Number: None

PATIENT
  Age: 76 Year
  Sex: Male

DRUGS (1)
  1. LOVASTATIN [Suspect]
     Dosage: 10MG EVERY DAY PO
     Route: 048
     Dates: start: 20070412, end: 20070529

REACTIONS (4)
  - BLOOD CREATININE INCREASED [None]
  - BLOOD UREA INCREASED [None]
  - HEPATIC ENZYME ABNORMAL [None]
  - MYALGIA [None]
